FAERS Safety Report 21391720 (Version 2)
Quarter: 2022Q4

REPORT INFORMATION
  Report Type: Spontaneous
  Country: DK (occurrence: DK)
  Receive Date: 20220929
  Receipt Date: 20221003
  Transmission Date: 20230113
  Serious: Yes (Other)
  Sender: FDA-Public Use
  Company Number: None

PATIENT
  Age: 40 Year
  Sex: Female
  Weight: 53 kg

DRUGS (6)
  1. SOLU-MEDROL [Suspect]
     Active Substance: METHYLPREDNISOLONE SODIUM SUCCINATE
     Indication: Colitis ulcerative
     Dosage: DOSAGE: MAX DOSE 80 MG WITH GRADUAL WITHDRAWAL. INTERVAL UNKNOWN. STRENGTH: UNKNOWN
     Dates: start: 202110, end: 202110
  2. PREDNISOLONE [Suspect]
     Active Substance: PREDNISOLONE
     Indication: Colitis ulcerative
     Dosage: DOSAGE: MAX DOSE 50 MG THEN GRADUAL WITHDRAWAL. INTERVAL UNKNOWN. STRENGTH: 5 MG
     Route: 048
     Dates: start: 202105, end: 202106
  3. PREDNISOLONE [Suspect]
     Active Substance: PREDNISOLONE
     Dosage: DOSAGE: MAX DOSE 50 MG THEN GRADUAL WITHDRAWAL. INTERVAL UNKNOWN. STRENGTH: 5 MG
     Route: 048
     Dates: start: 202110, end: 202112
  4. PREDNISOLONE [Suspect]
     Active Substance: PREDNISOLONE
     Dosage: DOSAGE: MAX DOSE 50 MG THEN GRADUAL WITHDRAWAL. INTERVAL UNKNOWN. STRENGTH: 5 MG
     Route: 048
     Dates: start: 202205, end: 202206
  5. STELARA [Concomitant]
     Active Substance: USTEKINUMAB
     Indication: Colitis ulcerative
     Dosage: UNK
     Dates: start: 202205
  6. INFLIXIMAB [Concomitant]
     Active Substance: INFLIXIMAB
     Indication: Colitis ulcerative
     Dosage: UNK
     Dates: start: 202111

REACTIONS (10)
  - Lipohypertrophy [Recovering/Resolving]
  - Fatigue [Not Recovered/Not Resolved]
  - Adrenal insufficiency [Not Recovered/Not Resolved]
  - Osteopenia [Not Recovered/Not Resolved]
  - Arthralgia [Not Recovered/Not Resolved]
  - Dry mouth [Not Recovered/Not Resolved]
  - Cataract [Not Recovered/Not Resolved]
  - Insomnia [Recovered/Resolved]
  - Weight increased [Recovering/Resolving]
  - Cushingoid [Recovering/Resolving]

NARRATIVE: CASE EVENT DATE: 20210501
